FAERS Safety Report 6787604-6 (Version None)
Quarter: 2010Q2

REPORT INFORMATION
  Report Type: 
  Country: None (occurrence: None)
  Receive Date: 20100623
  Receipt Date: 20070608
  Transmission Date: 20101027
  Serious: No
  Sender: FDA-Public Use
  Company Number: US-PFIZER INC-2007048158

PATIENT
  Sex: Female
  Weight: 69.09 kg

DRUGS (2)
  1. DEPO-PROVERA SUSPENSION/INJ [Suspect]
     Indication: CONTRACEPTION
     Dosage: 1ST INJECTION
     Route: 058
     Dates: start: 20070101, end: 20070101
  2. DEPO-PROVERA SUSPENSION/INJ [Suspect]
     Dosage: 2ND INJECTION
     Route: 058
     Dates: start: 20070607, end: 20070607

REACTIONS (5)
  - INJECTION SITE ERYTHEMA [None]
  - INJECTION SITE HYPERSENSITIVITY [None]
  - INJECTION SITE IRRITATION [None]
  - INJECTION SITE PRURITUS [None]
  - MALABSORPTION FROM INJECTION SITE [None]
